FAERS Safety Report 24357899 (Version 1)
Quarter: 2024Q3

REPORT INFORMATION
  Report Type: Spontaneous
  Country: CN (occurrence: CN)
  Receive Date: 20240924
  Receipt Date: 20240924
  Transmission Date: 20241016
  Serious: Yes (Other)
  Sender: BAXTER
  Company Number: None

PATIENT
  Age: 62 Year
  Sex: Female
  Weight: 60 kg

DRUGS (3)
  1. CYCLOPHOSPHAMIDE [Suspect]
     Active Substance: CYCLOPHOSPHAMIDE
     Indication: Nephrotic syndrome
     Dosage: 3.4 G, CUMULATIVE INFUSION
     Route: 041
  2. CYCLOPHOSPHAMIDE [Suspect]
     Active Substance: CYCLOPHOSPHAMIDE
     Dosage: 0.8 G, ONE TIME IN ONE DAY DILUTED WITH 500 ML OF SODIUM CHLORIDE, SEVENTH INFUSION (3.4 G AS CUMULA
     Route: 041
     Dates: start: 20240718, end: 20240718
  3. SODIUM CHLORIDE [Suspect]
     Active Substance: SODIUM CHLORIDE
     Indication: Medication dilution
     Dosage: 500 ML, ONE TIME IN ONE DAY USED TO DILUTE 0.8 G OF CYCLOPHOSPHAMIDE, SEVENTH INFUSION
     Route: 041
     Dates: start: 20240718, end: 20240718

REACTIONS (2)
  - Hepatic function abnormal [Unknown]
  - Transaminases increased [Recovering/Resolving]

NARRATIVE: CASE EVENT DATE: 20240830
